FAERS Safety Report 9992409 (Version 2)
Quarter: 2014Q2

REPORT INFORMATION
  Report Type: Spontaneous
  Country: US (occurrence: US)
  Receive Date: 20140310
  Receipt Date: 20140417
  Transmission Date: 20141212
  Serious: Yes (Death, Other)
  Sender: FDA-Public Use
  Company Number: US-GILEAD-2014-0096126

PATIENT
  Sex: Female

DRUGS (21)
  1. SOVALDI [Suspect]
     Indication: HEPATITIS C
     Dosage: 400 MG, QD
     Route: 065
     Dates: start: 20140131, end: 20140301
  2. PEGASYS [Concomitant]
     Dosage: 180 ?G, Q1WK ON FRIDAY
  3. RIBAVIRIN [Concomitant]
     Indication: HEPATITIS C
     Dosage: 1000 MG, QD
     Route: 048
  4. PROMETHAZINE [Concomitant]
  5. KCL [Concomitant]
  6. LEVAQUIN [Concomitant]
  7. TOPIRAMATE [Concomitant]
  8. FLUOXETINE [Concomitant]
  9. MONTELUKAST SODIUM [Concomitant]
  10. ESTRADIOL [Concomitant]
  11. PROGESTERONE [Concomitant]
  12. OXYCODONE [Concomitant]
  13. ALPRAZOLAM [Concomitant]
  14. MELOXICAM [Concomitant]
  15. ZOLPIDEM [Concomitant]
  16. VITAMIN E                          /00110501/ [Concomitant]
  17. IRON [Concomitant]
     Dosage: 325 MG, UNK
  18. RIZATRIPTAN [Concomitant]
  19. PROTONIX [Concomitant]
  20. PROBIOTIC                          /06395501/ [Concomitant]
  21. BENADRYL                           /00000402/ [Concomitant]

REACTIONS (2)
  - Asphyxia [Fatal]
  - Vomiting [Fatal]
